FAERS Safety Report 5757257-4 (Version None)
Quarter: 2008Q2

REPORT INFORMATION
  Report Type: 
  Country: None (occurrence: None)
  Receive Date: 20080507
  Receipt Date: 20070315
  Transmission Date: 20081010
  Serious: Yes (Hospitalization)
  Sender: FDA-Public Use
  Company Number: 232025K07USA

PATIENT
  Age: 55 Year
  Sex: Female

DRUGS (7)
  1. REBIF [Suspect]
     Indication: MULTIPLE SCLEROSIS
     Dosage: 44 MCG, 3 IN 1 WEEKS, SUBCUTANEOUS
     Route: 058
     Dates: start: 20021111
  2. BACLOFEN [Concomitant]
  3. LEXAPRO [Concomitant]
  4. DIOVAN [Concomitant]
  5. ZANTAC [Concomitant]
  6. SOLU-MEDROL [Concomitant]
  7. VITAMIN B12 [Concomitant]

REACTIONS (5)
  - MOBILITY DECREASED [None]
  - MULTIPLE SCLEROSIS RELAPSE [None]
  - MUSCULAR WEAKNESS [None]
  - URINARY INCONTINENCE [None]
  - URINARY TRACT INFECTION [None]
